FAERS Safety Report 5838920-3 (Version None)
Quarter: 2008Q3

REPORT INFORMATION
  Report Type: 
  Country: None (occurrence: None)
  Receive Date: 20080808
  Receipt Date: 20080731
  Transmission Date: 20090109
  Serious: Yes (Death)
  Sender: FDA-Public Use
  Company Number: PHBS2008TR05321

PATIENT
  Age: 73 Year
  Sex: Female

DRUGS (6)
  1. CYCLOSPORINE [Suspect]
     Indication: GRAFT VERSUS HOST DISEASE
  2. METHYLPREDNISOLONE [Concomitant]
     Indication: GRAFT VERSUS HOST DISEASE
  3. FLUDARABINE [Concomitant]
     Indication: GRAFT VERSUS HOST DISEASE
  4. VANCOMYCIN HCL [Concomitant]
  5. CEFTAZIDIME [Concomitant]
     Indication: FEBRILE NEUTROPENIA
     Route: 042
  6. AMIKACIN [Concomitant]
     Indication: FEBRILE NEUTROPENIA
     Route: 042

REACTIONS (2)
  - PYREXIA [None]
  - SEPSIS [None]
